FAERS Safety Report 21810354 (Version 2)
Quarter: 2023Q1

REPORT INFORMATION
  Report Type: Spontaneous
  Country: UZ (occurrence: UZ)
  Receive Date: 20230103
  Receipt Date: 20230130
  Transmission Date: 20230418
  Serious: Yes (Other)
  Sender: FDA-Public Use
  Company Number: UZ-MYLANLABS-2022M1148690

PATIENT
  Age: 57 Year
  Sex: Female
  Weight: 69 kg

DRUGS (17)
  1. PRETOMANID [Suspect]
     Active Substance: PRETOMANID
     Indication: Pulmonary tuberculosis
     Dosage: 200 MILLIGRAM, QD (7/7)
     Route: 065
     Dates: start: 20221118, end: 20221218
  2. PRETOMANID [Suspect]
     Active Substance: PRETOMANID
     Indication: Tuberculosis
     Dosage: 200 MILLIGRAM
     Route: 065
     Dates: start: 20230101
  3. DELAMANID [Suspect]
     Active Substance: DELAMANID
     Indication: Pulmonary tuberculosis
     Dosage: 200 MILLIGRAM, QD (7/7)
     Route: 065
     Dates: start: 20221028, end: 20221117
  4. DELAMANID [Suspect]
     Active Substance: DELAMANID
     Indication: Tuberculosis
  5. BEDAQUILINE [Suspect]
     Active Substance: BEDAQUILINE
     Indication: Pulmonary tuberculosis
     Dosage: 400 MILLIGRAM(MON WEDFRI)
     Route: 065
     Dates: start: 20221028, end: 20221110
  6. BEDAQUILINE [Suspect]
     Active Substance: BEDAQUILINE
     Indication: Tuberculosis
     Dosage: 200 MILLIGRAM(3/7)
     Route: 065
     Dates: start: 20221110, end: 20221218
  7. BEDAQUILINE [Suspect]
     Active Substance: BEDAQUILINE
     Dosage: 200 MILLIGRAM(3/7)
     Route: 065
     Dates: start: 20230104
  8. LINEZOLID [Suspect]
     Active Substance: LINEZOLID
     Indication: Pulmonary tuberculosis
     Dosage: 300 MILLIGRAM, QD (7/7)
     Route: 065
     Dates: start: 20221028, end: 20221218
  9. LINEZOLID [Suspect]
     Active Substance: LINEZOLID
     Indication: Tuberculosis
     Dosage: 300 MILLIGRAM, QD (7/7)
     Route: 065
     Dates: start: 20221226
  10. CLOFAZIMINE [Suspect]
     Active Substance: CLOFAZIMINE
     Indication: Pulmonary tuberculosis
     Dosage: 100 MILLIGRAM, QD (7/7)
     Route: 065
     Dates: start: 20221028, end: 20221218
  11. CLOFAZIMINE [Suspect]
     Active Substance: CLOFAZIMINE
     Indication: Tuberculosis
     Dosage: 100 MILLIGRAM
     Route: 065
     Dates: start: 20221229
  12. AMOXICILLIN\CLAVULANIC ACID [Suspect]
     Active Substance: AMOXICILLIN\CLAVULANIC ACID
     Indication: Pulmonary tuberculosis
     Dosage: 1250 MILLIGRAM, QD
     Route: 065
     Dates: start: 20221028, end: 20221117
  13. AMOXICILLIN\CLAVULANIC ACID [Suspect]
     Active Substance: AMOXICILLIN\CLAVULANIC ACID
     Indication: Tuberculosis
  14. MIRTAZAPINE [Suspect]
     Active Substance: MIRTAZAPINE
     Indication: Pulmonary tuberculosis
     Dosage: 15 MILLIGRAM, QD (7/7)
     Route: 065
     Dates: start: 20221201, end: 20221218
  15. MIRTAZAPINE [Suspect]
     Active Substance: MIRTAZAPINE
     Indication: Tuberculosis
  16. CILASTATIN SODIUM\IMIPENEM [Suspect]
     Active Substance: CILASTATIN SODIUM\IMIPENEM
     Indication: Pulmonary tuberculosis
     Dosage: 2000 MILLIGRAM, QD(7/7)
     Route: 042
     Dates: start: 20221028, end: 20221117
  17. CILASTATIN SODIUM\IMIPENEM [Suspect]
     Active Substance: CILASTATIN SODIUM\IMIPENEM
     Indication: Tuberculosis

REACTIONS (4)
  - Toxic skin eruption [Recovering/Resolving]
  - Heart rate irregular [Recovering/Resolving]
  - Hyperaemia [Recovering/Resolving]
  - Respiration abnormal [Recovering/Resolving]

NARRATIVE: CASE EVENT DATE: 20221218
